FAERS Safety Report 10071217 (Version 3)
Quarter: 2014Q2

REPORT INFORMATION
  Report Type: Report from Study
  Country: US (occurrence: US)
  Receive Date: 20140410
  Receipt Date: 20140509
  Transmission Date: 20141212
  Serious: Yes (Hospitalization, Other)
  Sender: FDA-Public Use
  Company Number: US-ABBVIE-14P-163-1220473-00

PATIENT
  Age: 56 Year
  Sex: Male
  Weight: 83.08 kg

DRUGS (3)
  1. HUMIRA [Suspect]
     Indication: CROHN^S DISEASE
     Dosage: LOADING DOSE
     Route: 058
  2. HUMIRA [Suspect]
     Route: 058
     Dates: start: 201403, end: 201403
  3. SYNTHROID [Concomitant]
     Indication: BASEDOW^S DISEASE
     Dosage: DAILY

REACTIONS (13)
  - Anal fistula [Recovering/Resolving]
  - Anal abscess [Recovering/Resolving]
  - Malaise [Not Recovered/Not Resolved]
  - Pyrexia [Not Recovered/Not Resolved]
  - Fatigue [Not Recovered/Not Resolved]
  - Anal fistula [Recovered/Resolved]
  - Fistula [Unknown]
  - Surgery [Unknown]
  - Anxiety [Unknown]
  - Palpitations [Unknown]
  - Muscular weakness [Unknown]
  - Feeling abnormal [Unknown]
  - Asthenia [Unknown]
